FAERS Safety Report 16785755 (Version 3)
Quarter: 2019Q4

REPORT INFORMATION
  Report Type: Spontaneous
  Country: US (occurrence: US)
  Receive Date: 20190909
  Receipt Date: 20191211
  Transmission Date: 20200122
  Serious: No
  Sender: FDA-Public Use
  Company Number: US-PFIZER INC-2019146573

PATIENT
  Age: 67 Year
  Sex: Female

DRUGS (2)
  1. SKELAXIN [Suspect]
     Active Substance: METAXALONE
     Dosage: 800 MG, DAILY (NIGHTLY)
     Route: 048
  2. SKELAXIN [Suspect]
     Active Substance: METAXALONE
     Dosage: 1600 MG, DAILY (ALSO REPORTED AS HAD BEEN DOUBLING IT)
     Route: 048

REACTIONS (5)
  - Fibromyalgia [Unknown]
  - Off label use [Unknown]
  - Visual impairment [Unknown]
  - Dyspnoea [Unknown]
  - Intentional product use issue [Unknown]

NARRATIVE: CASE EVENT DATE: 1999
